FAERS Safety Report 7377287-9 (Version None)
Quarter: 2011Q1

REPORT INFORMATION
  Report Type: 
  Country: None (occurrence: None)
  Receive Date: 20110316
  Receipt Date: 20101016
  Transmission Date: 20110831
  Serious: Yes (Hospitalization)
  Sender: FDA-Public Use
  Company Number: 2010S1000869

PATIENT
  Age: 57 Year
  Sex: Female
  Weight: 67.6 kg

DRUGS (7)
  1. LIVALO [Suspect]
     Indication: TYPE 2 DIABETES MELLITUS
     Dosage: BID;PO; 100 MG;BID;PO; 200 MG;BID;PO
     Route: 048
     Dates: start: 20100520, end: 20100906
  2. LIVALO [Suspect]
     Indication: TYPE 2 DIABETES MELLITUS
     Dosage: BID;PO; 100 MG;BID;PO; 200 MG;BID;PO
     Route: 048
     Dates: start: 20091029, end: 20100121
  3. LIVALO [Suspect]
     Indication: TYPE 2 DIABETES MELLITUS
     Dosage: BID;PO; 100 MG;BID;PO; 200 MG;BID;PO
     Route: 048
     Dates: start: 20100121, end: 20100520
  4. MIGLITOL [Concomitant]
  5. INFLUENZA HA VACCINE [Concomitant]
  6. VACCINE [Concomitant]
  7. NORVASC [Concomitant]

REACTIONS (3)
  - UTERINE CANCER [None]
  - URINE ANALYSIS ABNORMAL [None]
  - BLOOD URINE PRESENT [None]
